FAERS Safety Report 5458621-3 (Version None)
Quarter: 2007Q3

REPORT INFORMATION
  Report Type: 
  Country: None (occurrence: None)
  Receive Date: 20070919
  Receipt Date: 20070917
  Transmission Date: 20080115
  Serious: Yes (Hospitalization, Other)
  Sender: FDA-Public Use
  Company Number: US-BRISTOL-MYERS SQUIBB COMPANY-13911219

PATIENT
  Age: 82 Year
  Sex: Male

DRUGS (4)
  1. IRBESARTAN [Suspect]
  2. FUROSEMIDE [Suspect]
  3. MEMANTINE HCL [Suspect]
  4. VALPROIC ACID [Suspect]
     Indication: CONVULSION
     Dosage: VPA DISCONTINUED.INITIAL DOSE 1000MG/DAY INCREASED TO 2000MG IN JULY 2005.
     Dates: start: 20040101

REACTIONS (5)
  - AKINESIA [None]
  - DEMENTIA [None]
  - HYPERTONIA [None]
  - MUSCLE RIGIDITY [None]
  - TREMOR [None]
